FAERS Safety Report 24979929 (Version 2)
Quarter: 2025Q2

REPORT INFORMATION
  Report Type: Other
  Country: US (occurrence: US)
  Receive Date: 20250218
  Receipt Date: 20250516
  Transmission Date: 20250717
  Serious: No
  Sender: TRAVERE THERAPEUTICS
  Company Number: US-TRAVERE-2025TVT00202

PATIENT
  Age: 50 Year
  Sex: Male

DRUGS (1)
  1. FILSPARI [Suspect]
     Active Substance: SPARSENTAN
     Indication: Product used for unknown indication
     Route: 048
     Dates: start: 20250114

REACTIONS (6)
  - Dry mouth [Unknown]
  - Urine abnormality [Unknown]
  - Abdominal pain upper [Unknown]
  - Nausea [Unknown]
  - Gallbladder disorder [Unknown]
  - Abdominal tenderness [Unknown]
